FAERS Safety Report 7026565-1 (Version None)
Quarter: 2010Q4

REPORT INFORMATION
  Report Type: 
  Country: None (occurrence: None)
  Receive Date: 20101004
  Receipt Date: 20100923
  Transmission Date: 20110411
  Serious: Yes (Death, Other)
  Sender: FDA-Public Use
  Company Number: US-SANOFI-AVENTIS-2010SA058076

PATIENT
  Age: 83 Year
  Sex: Female

DRUGS (1)
  1. LOVENOX [Suspect]
     Indication: HIP SURGERY
     Route: 058

REACTIONS (3)
  - CEREBROVASCULAR ACCIDENT [None]
  - CONTUSION [None]
  - HAEMATURIA [None]
